FAERS Safety Report 10067486 (Version 1)
Quarter: 2014Q2

REPORT INFORMATION
  Report Type: Report from Study
  Country: CA (occurrence: CA)
  Receive Date: 20140409
  Receipt Date: 20140409
  Transmission Date: 20141212
  Serious: Yes (Hospitalization)
  Sender: FDA-Public Use
  Company Number: CA-JNJFOC-20140319257

PATIENT
  Age: 16 Year
  Sex: Female
  Weight: 57 kg

DRUGS (4)
  1. REMICADE [Suspect]
     Indication: CROHN^S DISEASE
     Route: 042
     Dates: start: 2008
  2. MACROBID (NITROFURANTOIN) [Concomitant]
     Route: 048
     Dates: start: 20140305, end: 20140312
  3. ZOLOFT [Concomitant]
     Route: 048
     Dates: start: 20140301
  4. BIRTH CONTROL PILL [Concomitant]
     Route: 065

REACTIONS (3)
  - Depression [Unknown]
  - Anxiety [Unknown]
  - Urinary tract infection [Recovered/Resolved]
